FAERS Safety Report 15741976 (Version 1)
Quarter: 2018Q4

REPORT INFORMATION
  Report Type: Spontaneous
  Country: NO (occurrence: NO)
  Receive Date: 20181219
  Receipt Date: 20181219
  Transmission Date: 20190205
  Serious: Yes (Hospitalization, Disabling, Other)
  Sender: FDA-Public Use
  Company Number: NO-ELI_LILLY_AND_COMPANY-NO201812007225

PATIENT
  Age: 19 Year
  Sex: Female
  Weight: 55 kg

DRUGS (4)
  1. ABILIFY [Concomitant]
     Active Substance: ARIPIPRAZOLE
     Dosage: UNK, UNKNOWN
     Route: 065
     Dates: start: 20150414, end: 20171021
  2. ZYPREXA [Suspect]
     Active Substance: OLANZAPINE
     Indication: PSYCHOTIC DISORDER
     Dosage: 20 MG, DAILY
     Route: 048
     Dates: start: 20140121, end: 20171013
  3. TRUXAL [CHLORPROTHIXENE ACETATE] [Concomitant]
     Dosage: UNK UNK, UNKNOWN
     Route: 065
     Dates: start: 20150524, end: 20181209
  4. ZYPADHERA [Concomitant]
     Active Substance: OLANZAPINE PAMOATE
     Dosage: UNK, UNKNOWN
     Route: 065
     Dates: start: 20140321, end: 20140705

REACTIONS (8)
  - Bradyphrenia [Recovered/Resolved with Sequelae]
  - Amenorrhoea [Unknown]
  - Chills [Recovered/Resolved with Sequelae]
  - Overdose [Unknown]
  - Apathy [Recovered/Resolved with Sequelae]
  - Weight increased [Unknown]
  - Muscle spasms [Recovered/Resolved with Sequelae]
  - Disturbance in social behaviour [Recovered/Resolved with Sequelae]

NARRATIVE: CASE EVENT DATE: 20140122
